FAERS Safety Report 7508729-3 (Version None)
Quarter: 2011Q2

REPORT INFORMATION
  Report Type: 
  Country: None (occurrence: None)
  Receive Date: 20110527
  Receipt Date: 20101012
  Transmission Date: 20111010
  Serious: No
  Sender: FDA-Public Use
  Company Number: A0886129A

PATIENT
  Age: 70 Year
  Sex: Male

DRUGS (8)
  1. METFORMIN HCL [Concomitant]
  2. ADVAIR DISKUS 100/50 [Suspect]
     Route: 055
     Dates: start: 20080101
  3. ACTOS [Concomitant]
  4. LISINOPRIL [Concomitant]
  5. VENTOLIN [Suspect]
     Dosage: 1PUFF AS REQUIRED
     Route: 055
     Dates: start: 20100828
  6. ALBUTEROL SULFATE AUTOHALER [Suspect]
     Route: 055
  7. ATENOLOL [Concomitant]
  8. HYDROCHLOROTHIAZIDE [Concomitant]

REACTIONS (8)
  - GLOSSODYNIA [None]
  - RESPIRATORY TRACT IRRITATION [None]
  - DRUG ADMINISTRATION ERROR [None]
  - MEDICATION RESIDUE [None]
  - PRODUCT QUALITY ISSUE [None]
  - WHEEZING [None]
  - THERAPEUTIC RESPONSE DECREASED [None]
  - PRODUCT TASTE ABNORMAL [None]
